FAERS Safety Report 4267355-2 (Version None)
Quarter: 2004Q1

REPORT INFORMATION
  Report Type: 
  Country: None (occurrence: None)
  Receive Date: 20040107
  Receipt Date: 20040102
  Transmission Date: 20041129
  Serious: Yes (Death, Hospitalization)
  Sender: FDA-Public Use
  Company Number: 2003-12-0803

PATIENT
  Age: 58 Year
  Sex: Female
  Weight: 54 kg

DRUGS (17)
  1. PEG-INTRON [Suspect]
     Indication: HEPATITIS C
     Dosage: 80 MCG QWK SUBCUTANEOUS
     Route: 058
     Dates: start: 20030925, end: 20031107
  2. REBETOL [Suspect]
     Indication: HEPATITIS C
     Dosage: 800 MG QWK SUBCUTANEOUS
     Route: 058
     Dates: start: 20030925, end: 20031109
  3. CIPROFLOXACIN [Concomitant]
  4. CIPRODLOXACIN 40 MG [Concomitant]
  5. CEFEPIME [Concomitant]
  6. ACETAMINOPHEN [Concomitant]
  7. DICLOFENAC SODIUM [Concomitant]
  8. LEVOFLOXACIN [Concomitant]
  9. METHYLPREDNISONE [Concomitant]
  10. ISONIAZID [Concomitant]
  11. PYRAZINAMIDE [Concomitant]
  12. RIFAMPICIN [Concomitant]
  13. SOLTRIM [Concomitant]
  14. CYCLOPHOSPHAMIDE [Concomitant]
  15. MIDAZOLAM PERFUSION [Concomitant]
  16. TRAMADOL HCL [Concomitant]
  17. PIPERACILLIN SODIUM [Concomitant]

REACTIONS (8)
  - ALVEOLITIS [None]
  - CHEST X-RAY ABNORMAL [None]
  - DRUG INEFFECTIVE [None]
  - INTERSTITIAL LUNG DISEASE [None]
  - NEUTROPENIA [None]
  - PULMONARY FIBROSIS [None]
  - RESPIRATORY FAILURE [None]
  - SUPERINFECTION LUNG [None]
